FAERS Safety Report 8161384-4 (Version None)
Quarter: 2012Q1

REPORT INFORMATION
  Report Type: 
  Country: None (occurrence: None)
  Receive Date: 20120222
  Receipt Date: 20120222
  Transmission Date: 20120608
  Serious: Yes (Life-Threatening, Hospitalization)
  Sender: FDA-Public Use
  Company Number: None

PATIENT
  Age: 71 Year
  Sex: Male
  Weight: 78 kg

DRUGS (2)
  1. PHENYTOIN [Suspect]
     Indication: CONVULSION
     Dosage: 100 MG TID IV
     Route: 042
     Dates: start: 20120216, end: 20120217
  2. FOSPHENYTOIN [Suspect]
     Indication: CONVULSION
     Dosage: 1680 MG ONCE IV
     Route: 042
     Dates: start: 20120216, end: 20120216

REACTIONS (4)
  - SKIN EXFOLIATION [None]
  - TOXIC EPIDERMAL NECROLYSIS [None]
  - STEVENS-JOHNSON SYNDROME [None]
  - HYPOTENSION [None]
